FAERS Safety Report 25068088 (Version 1)
Quarter: 2025Q1

REPORT INFORMATION
  Report Type: Spontaneous
  Country: US (occurrence: None)
  Receive Date: 20250311
  Receipt Date: 20250311
  Transmission Date: 20250409
  Serious: Yes (unspecified)
  Sender: FDA-CTU
  Company Number: None

PATIENT
  Age: 64 Year
  Sex: Male
  Weight: 91.8 kg

DRUGS (6)
  1. OZEMPIC [Suspect]
     Active Substance: SEMAGLUTIDE
     Indication: Type 2 diabetes mellitus
     Dates: start: 20200304, end: 20250311
  2. METFORMIN [Concomitant]
     Active Substance: METFORMIN HYDROCHLORIDE
     Dates: start: 20191218
  3. LISINOPRIL [Concomitant]
     Active Substance: LISINOPRIL
     Dates: start: 20191218
  4. LOVASTATIN [Concomitant]
     Active Substance: LOVASTATIN
     Dates: start: 20191218
  5. TRESIBA [Concomitant]
     Active Substance: INSULIN DEGLUDEC
     Dates: start: 20191218
  6. CETIRIZINE [Concomitant]
     Active Substance: CETIRIZINE HYDROCHLORIDE
     Dates: start: 20191218

REACTIONS (2)
  - Pancreatitis [None]
  - Therapy cessation [None]

NARRATIVE: CASE EVENT DATE: 20250311
